FAERS Safety Report 17524148 (Version 1)
Quarter: 2020Q1

REPORT INFORMATION
  Report Type: Spontaneous
  Country: US (occurrence: US)
  Receive Date: 20200302
  Receipt Date: 20200302
  Transmission Date: 20200409
  Serious: Yes (Other)
  Sender: FDA-Public Use
  Company Number: None

PATIENT
  Age: 90 Year
  Sex: Female
  Weight: 68.04 kg

DRUGS (1)
  1. ISOSORBIDE MONONITRATE ER 30MG TABLETS [Suspect]
     Active Substance: ISOSORBIDE MONONITRATE
     Indication: HYPERTENSION
     Dosage: ?          QUANTITY:1 PILL MORNINGS;OTHER FREQUENCY:1 MORNINGS;?
     Route: 048
     Dates: start: 20191024, end: 20191027

REACTIONS (12)
  - Paraesthesia [None]
  - Limb discomfort [None]
  - Confusional state [None]
  - Constipation [None]
  - Muscle tightness [None]
  - Insomnia [None]
  - Hallucination [None]
  - Nightmare [None]
  - Peripheral coldness [None]
  - Dizziness [None]
  - Somnolence [None]
  - Vein disorder [None]

NARRATIVE: CASE EVENT DATE: 20191026
